FAERS Safety Report 7161316-1 (Version None)
Quarter: 2010Q4

REPORT INFORMATION
  Report Type: 
  Country: None (occurrence: None)
  Receive Date: 20101215
  Receipt Date: 20101130
  Transmission Date: 20110411
  Serious: Yes (Death)
  Sender: FDA-Public Use
  Company Number: DE-CELGENEUS-062-50794-10121248

PATIENT
  Age: 74 Year
  Sex: Male

DRUGS (3)
  1. VIDAZA [Suspect]
     Route: 051
  2. CYTARABINE [Concomitant]
     Route: 051
  3. DAUNORUBICIN HCL [Concomitant]
     Route: 051

REACTIONS (1)
  - ACUTE MYELOID LEUKAEMIA [None]
